FAERS Safety Report 9425745 (Version 2)
Quarter: 2013Q3

REPORT INFORMATION
  Report Type: Spontaneous
  Country: FR (occurrence: FR)
  Receive Date: 20130729
  Receipt Date: 20130812
  Transmission Date: 20140515
  Serious: Yes (Hospitalization, Other)
  Sender: FDA-Public Use
  Company Number: FR-PFIZER INC-2013215202

PATIENT
  Age: 79 Year
  Sex: Female

DRUGS (15)
  1. EFFEXOR [Suspect]
     Dosage: UNK
     Route: 048
  2. PANTOPRAZOLE [Suspect]
     Dosage: UNK
     Route: 048
  3. CIFLOX [Suspect]
     Indication: LUNG DISORDER
     Dosage: 200 MG, 2X/DAY
     Route: 048
     Dates: start: 20130512, end: 20130512
  4. CIFLOX [Suspect]
     Dosage: 500 MG, 2X/DAY
     Route: 048
     Dates: start: 20130513, end: 20130516
  5. SOLUPRED [Suspect]
     Indication: LUNG DISORDER
     Dosage: 40 MG, 1X/DAY
     Route: 048
     Dates: start: 20130512
  6. LEXOMIL [Suspect]
     Dosage: UNK
     Route: 048
  7. ZOLPIDEM [Suspect]
     Dosage: UNK
     Route: 048
  8. VERAPAMIL [Concomitant]
     Dosage: UNK
     Route: 048
  9. AUGMENTIN [Concomitant]
     Indication: LUNG DISORDER
     Dosage: 1 DF, 3X/DAY
     Route: 042
     Dates: start: 20130512, end: 20130517
  10. AUGMENTIN [Concomitant]
     Dosage: 1 G, 3X/DAY
     Route: 048
     Dates: start: 20130517, end: 20130520
  11. FUNGIZONE [Concomitant]
     Indication: LUNG DISORDER
     Dosage: UNK
     Route: 048
     Dates: start: 201305
  12. VENTOLINE [Concomitant]
     Indication: LUNG DISORDER
     Dosage: UNK
     Route: 055
     Dates: start: 201305
  13. ATROVENT [Concomitant]
     Indication: LUNG DISORDER
     Dosage: UNK
     Route: 055
     Dates: start: 201305
  14. LEVOTHYROX [Concomitant]
     Dosage: UNK
  15. FORADIL [Concomitant]
     Dosage: UNK

REACTIONS (3)
  - Hallucination, visual [Recovered/Resolved]
  - Lung disorder [Recovered/Resolved]
  - Infective exacerbation of chronic obstructive airways disease [Recovered/Resolved]
